FAERS Safety Report 10086784 (Version 2)
Quarter: 2014Q2

REPORT INFORMATION
  Report Type: Report from Study
  Country: US (occurrence: US)
  Receive Date: 20140418
  Receipt Date: 20140506
  Transmission Date: 20141212
  Serious: Yes (Other)
  Sender: FDA-Public Use
  Company Number: US-ACTELION-A-US2014-97617

PATIENT
  Age: 52 Year
  Sex: Female

DRUGS (2)
  1. VENTAVIS [Suspect]
     Indication: PULMONARY ARTERIAL HYPERTENSION
     Dosage: 5 MCG, 7XDAILY
     Route: 055
     Dates: start: 20131105
  2. OPSUMIT [Concomitant]
     Indication: PULMONARY ARTERIAL HYPERTENSION
     Dosage: 10 MG, QD
     Route: 048
     Dates: start: 20140211

REACTIONS (4)
  - Dental caries [Not Recovered/Not Resolved]
  - Ageusia [Not Recovered/Not Resolved]
  - Gingival atrophy [Not Recovered/Not Resolved]
  - Dry mouth [Not Recovered/Not Resolved]
